FAERS Safety Report 5132399-5 (Version None)
Quarter: 2006Q4

REPORT INFORMATION
  Report Type: 
  Country: None (occurrence: None)
  Receive Date: 20061017
  Receipt Date: 20061002
  Transmission Date: 20070319
  Serious: Yes (Hospitalization)
  Sender: FDA-Public Use
  Company Number: IT200607004742

PATIENT
  Age: 4 Year
  Sex: Male

DRUGS (1)
  1. HUMATROPE (SOMATROPE) VIAL [Suspect]
     Indication: GROWTH HORMONE DEFICIENCY
     Dosage: 0.3 MG, DAILY (1/D), SUBCUTANEOUS
     Route: 058
     Dates: start: 20041118, end: 20060630

REACTIONS (3)
  - LEUKOPENIA [None]
  - NEUTROPENIA [None]
  - THROMBOCYTOPENIA [None]
